FAERS Safety Report 10590115 (Version 1)
Quarter: 2014Q4

REPORT INFORMATION
  Report Type: Spontaneous
  Country: US (occurrence: None)
  Receive Date: 20141117
  Receipt Date: 20141117
  Transmission Date: 20150529
  Serious: Yes (Hospitalization)
  Sender: FDA-Public Use
  Company Number: None

PATIENT
  Age: 17 Year
  Sex: Female
  Weight: 86.18 kg

DRUGS (2)
  1. ABILIFY [Suspect]
     Active Substance: ARIPIPRAZOLE
     Indication: GENERALISED ANXIETY DISORDER
     Dosage: 1 PILL  ONCE DAILY TAKEN BY MOUTH
     Route: 048
     Dates: start: 20141115, end: 20141115
  2. ABILIFY [Suspect]
     Active Substance: ARIPIPRAZOLE
     Indication: MAJOR DEPRESSION
     Dosage: 1 PILL  ONCE DAILY TAKEN BY MOUTH
     Route: 048
     Dates: start: 20141115, end: 20141115

REACTIONS (9)
  - Eyelids pruritus [None]
  - Swollen tongue [None]
  - Lip swelling [None]
  - Lip pruritus [None]
  - Cheilitis [None]
  - Sensation of foreign body [None]
  - Erythema [None]
  - Chest discomfort [None]
  - Eye pruritus [None]

NARRATIVE: CASE EVENT DATE: 20141116
